FAERS Safety Report 21990305 (Version 1)
Quarter: 2023Q1

REPORT INFORMATION
  Report Type: Spontaneous
  Country: US (occurrence: None)
  Receive Date: 20230213
  Receipt Date: 20230213
  Transmission Date: 20230418
  Serious: Yes (Death)
  Sender: FDA-Public Use
  Company Number: None

PATIENT
  Sex: Male

DRUGS (1)
  1. BRAFTOVI [Suspect]
     Active Substance: ENCORAFENIB
     Indication: Small intestine carcinoma
     Dosage: 300MG DAILY ORAL
     Route: 048

REACTIONS (2)
  - Blood urine present [None]
  - Dyspnoea [None]
